FAERS Safety Report 22393736 (Version 1)
Quarter: 2023Q2

REPORT INFORMATION
  Report Type: Spontaneous
  Country: NL (occurrence: NL)
  Receive Date: 20230601
  Receipt Date: 20230601
  Transmission Date: 20230721
  Serious: Yes (Hospitalization)
  Sender: FDA-Public Use
  Company Number: None

PATIENT
  Sex: Female
  Weight: 91 kg

DRUGS (3)
  1. PACLITAXEL [Suspect]
     Active Substance: PACLITAXEL
     Indication: Breast cancer
     Dosage: 132 MG/DAY IN THE LAST WEEK, 168 MG
     Dates: start: 20230413, end: 20230522
  2. RIVAROXABAN [Concomitant]
     Active Substance: RIVAROXABAN
     Dosage: 15 MG
  3. LIDOCAINE [Concomitant]
     Active Substance: LIDOCAINE
     Dosage: 25/25 MG/G

REACTIONS (1)
  - Pneumonitis [Recovering/Resolving]
